FAERS Safety Report 13353033 (Version 3)
Quarter: 2017Q2

REPORT INFORMATION
  Report Type: Report from Study
  Country: GB (occurrence: GB)
  Receive Date: 20170321
  Receipt Date: 20170610
  Transmission Date: 20170830
  Serious: Yes (Hospitalization, Other)
  Sender: FDA-Public Use
  Company Number: GB-AMGEN-GBRSL2017042205

PATIENT
  Age: 83 Year
  Sex: Female

DRUGS (1)
  1. ARANESP [Suspect]
     Active Substance: DARBEPOETIN ALFA
     Indication: PRODUCT USED FOR UNKNOWN INDICATION
     Dosage: 40 MCG, UNK
     Route: 065

REACTIONS (3)
  - Peripheral swelling [Unknown]
  - Lower respiratory tract infection [Unknown]
  - Pneumonia [Unknown]
